FAERS Safety Report 9550789 (Version 4)
Quarter: 2020Q1

REPORT INFORMATION
  Report Type: Report from Study
  Country: US (occurrence: US)
  Receive Date: 20130924
  Receipt Date: 20200218
  Transmission Date: 20200409
  Serious: Yes (Hospitalization, Other)
  Sender: FDA-Public Use
  Company Number: US-SANOFI-AVENTIS-2013SA048142

PATIENT
  Age: 59 Year
  Sex: Male
  Weight: 230 kg

DRUGS (13)
  1. TERIFLUNOMIDE. [Suspect]
     Active Substance: TERIFLUNOMIDE
     Indication: MULTIPLE SCLEROSIS
     Dosage: 14 MG,QD
     Route: 048
     Dates: start: 20130304
  2. AMPYRA [Concomitant]
     Active Substance: DALFAMPRIDINE
     Dosage: UNK UNK,UNK
     Dates: start: 201505
  3. HYDROCHLOROTHIAZIDE. [Concomitant]
     Active Substance: HYDROCHLOROTHIAZIDE
     Indication: BLOOD PRESSURE MEASUREMENT
     Dosage: 1 DF,UNK
     Dates: start: 2012
  4. LOSARTAN. [Concomitant]
     Active Substance: LOSARTAN
     Indication: BLOOD PRESSURE MEASUREMENT
     Dosage: 1 DF,UNK
     Dates: start: 2012
  5. VALIUM [Concomitant]
     Active Substance: DIAZEPAM
     Dosage: UNK UNK,UNK
  6. METOPROLOL. [Concomitant]
     Active Substance: METOPROLOL
     Indication: BLOOD PRESSURE INCREASED
     Dosage: 1 DF,UNK
     Dates: start: 2012
  7. ISOSORBIDE MONONITE [Concomitant]
     Indication: BLOOD PRESSURE MEASUREMENT
     Dosage: 1 DF,UNK
     Dates: start: 2012
  8. PRAVASTATIN. [Concomitant]
     Active Substance: PRAVASTATIN
  9. NORTRIPTYLINE [Concomitant]
     Active Substance: NORTRIPTYLINE
     Indication: UNEVALUABLE EVENT
  10. BISOPROLOL [Concomitant]
     Active Substance: BISOPROLOL
     Indication: BLOOD PRESSURE MEASUREMENT
     Dosage: 1 DF,QD
     Dates: start: 1998, end: 201304
  11. TERIFLUNOMIDE. [Suspect]
     Active Substance: TERIFLUNOMIDE
     Dosage: 14 MG,QD
     Route: 048
  12. TRAMADOL. [Concomitant]
     Active Substance: TRAMADOL
     Indication: PAIN IN EXTREMITY
     Dosage: 1 DF,TID
     Dates: start: 1997
  13. ACETYLSALICYLIC ACID [Concomitant]
     Active Substance: ASPIRIN
     Indication: HYPERTENSION
     Dosage: 1 DF,QD
     Dates: start: 2010

REACTIONS (18)
  - Cough [Not Recovered/Not Resolved]
  - Hemiparesis [Not Recovered/Not Resolved]
  - Malaise [Not Recovered/Not Resolved]
  - Gait disturbance [Unknown]
  - Peroneal nerve palsy [Recovering/Resolving]
  - Eye disorder [Not Recovered/Not Resolved]
  - Dysgraphia [Not Recovered/Not Resolved]
  - Multiple sclerosis [Unknown]
  - Gastric disorder [Recovered/Resolved]
  - Condition aggravated [Unknown]
  - Nausea [Recovered/Resolved]
  - Pollakiuria [Recovered/Resolved]
  - Memory impairment [Not Recovered/Not Resolved]
  - Cataract [Unknown]
  - Unevaluable event [Unknown]
  - Muscular weakness [Not Recovered/Not Resolved]
  - Limb discomfort [Unknown]
  - Affect lability [Not Recovered/Not Resolved]

NARRATIVE: CASE EVENT DATE: 2013
